FAERS Safety Report 21063305 (Version 2)
Quarter: 2022Q3

REPORT INFORMATION
  Report Type: Spontaneous
  Country: DE (occurrence: DE)
  Receive Date: 20220711
  Receipt Date: 20220713
  Transmission Date: 20221027
  Serious: Yes (Death)
  Sender: FDA-Public Use
  Company Number: DE-SAMSUNG BIOEPIS-SB-2022-16593

PATIENT

DRUGS (6)
  1. TRASTUZUMAB [Suspect]
     Active Substance: TRASTUZUMAB
     Indication: Oesophageal adenocarcinoma
     Dosage: LOADING DOSE
     Route: 065
  2. TRASTUZUMAB [Suspect]
     Active Substance: TRASTUZUMAB
     Dosage: FOR A TOTAL OF 12 WEEKS
     Route: 065
  3. TRASTUZUMAB [Suspect]
     Active Substance: TRASTUZUMAB
     Dosage: FROM WEEK 13
     Route: 065
  4. NIVOLUMAB [Suspect]
     Active Substance: NIVOLUMAB
     Indication: Oesophageal adenocarcinoma
     Dosage: FOR A TOTAL OF 12 WEEKS
     Route: 065
  5. NIVOLUMAB [Suspect]
     Active Substance: NIVOLUMAB
     Dosage: FROM WEEK 13
     Route: 065
  6. IPILIMUMAB [Suspect]
     Active Substance: IPILIMUMAB
     Indication: Oesophageal adenocarcinoma
     Dosage: FOR A TOTAL OF 12 WEEKS
     Route: 065

REACTIONS (2)
  - Death [Fatal]
  - Off label use [Unknown]
